FAERS Safety Report 7754591-3 (Version None)
Quarter: 2011Q3

REPORT INFORMATION
  Report Type: 
  Country: None (occurrence: None)
  Receive Date: 20110915
  Receipt Date: 20110906
  Transmission Date: 20111222
  Serious: Yes (Life-Threatening)
  Sender: FDA-Public Use
  Company Number: US-MPIJNJ-2011-04068

PATIENT
  Age: 79 Year
  Sex: Male
  Weight: 60.771 kg

DRUGS (1)
  1. VELCADE [Suspect]
     Indication: MULTIPLE MYELOMA
     Dosage: 1.3 MG/M2, CYCLIC
     Route: 042
     Dates: start: 20101025, end: 20110207

REACTIONS (1)
  - TONSIL CANCER [None]
